FAERS Safety Report 6573679-6 (Version None)
Quarter: 2010Q1

REPORT INFORMATION
  Report Type: 
  Country: None (occurrence: None)
  Receive Date: 20100208
  Receipt Date: 20100201
  Transmission Date: 20100710
  Serious: Yes (Congenital Anomaly)
  Sender: FDA-Public Use
  Company Number: DE-TEVA-201222ISR

PATIENT
  Sex: Male

DRUGS (2)
  1. COPAXONE [Suspect]
     Indication: MULTIPLE SCLEROSIS
     Route: 064
     Dates: start: 20020101
  2. ZOPICLONE [Concomitant]
     Indication: SLEEP DISORDER

REACTIONS (1)
  - CLEFT LIP [None]
